FAERS Safety Report 9032108 (Version 1)
Quarter: 2013Q1

REPORT INFORMATION
  Report Type: Spontaneous
  Country: US (occurrence: US)
  Receive Date: 20130122
  Receipt Date: 20130122
  Transmission Date: 20140127
  Serious: Yes (Hospitalization)
  Sender: FDA-Public Use
  Company Number: US-BAYER-2013-006788

PATIENT
  Age: 44 Year
  Sex: Female

DRUGS (6)
  1. YAZ [Suspect]
  2. YASMIN [Suspect]
     Indication: MENSTRUATION IRREGULAR
  3. ZYRTEC [Concomitant]
  4. BUTALBITAL, ACETAMINOPHEN + CAFFEINE [Concomitant]
  5. TYLENOL [Concomitant]
  6. VICODIN [Concomitant]

REACTIONS (5)
  - Peripheral artery thrombosis [Recovered/Resolved]
  - Subclavian artery thrombosis [Recovered/Resolved]
  - Venous thrombosis [None]
  - Peripheral arterial occlusive disease [Recovered/Resolved]
  - Subclavian artery thrombosis [None]
